FAERS Safety Report 15053092 (Version 3)
Quarter: 2018Q3

REPORT INFORMATION
  Report Type: Report from Study
  Country: US (occurrence: US)
  Receive Date: 20180622
  Receipt Date: 20180702
  Transmission Date: 20181010
  Serious: Yes (Other)
  Sender: FDA-Public Use
  Company Number: US-JNJFOC-20180602072

PATIENT
  Age: 64 Year
  Sex: Male

DRUGS (2)
  1. IMBRUVICA [Suspect]
     Active Substance: IBRUTINIB
     Indication: DIFFUSE LARGE B-CELL LYMPHOMA
     Route: 048
     Dates: start: 20180118, end: 20180522
  2. IMBRUVICA [Suspect]
     Active Substance: IBRUTINIB
     Indication: DIFFUSE LARGE B-CELL LYMPHOMA
     Route: 048
     Dates: start: 20180523, end: 20180614

REACTIONS (11)
  - Off label use [Unknown]
  - Myalgia [Recovered/Resolved]
  - Deafness [Unknown]
  - Malaise [Unknown]
  - Dyspnoea [Unknown]
  - Asthenia [Unknown]
  - Heart rate irregular [Unknown]
  - Impaired gastric emptying [Unknown]
  - Muscle fatigue [Unknown]
  - Product use in unapproved indication [Unknown]
  - Disease progression [Unknown]

NARRATIVE: CASE EVENT DATE: 20180523
